FAERS Safety Report 25698275 (Version 1)
Quarter: 2025Q3

REPORT INFORMATION
  Report Type: Spontaneous
  Country: CA (occurrence: CA)
  Receive Date: 20250819
  Receipt Date: 20250819
  Transmission Date: 20251021
  Serious: Yes (Other)
  Sender: ALEXION PHARMACEUTICALS
  Company Number: CA-ASTRAZENECA-202508CAN008700CA

PATIENT
  Age: 77 Year
  Sex: Female

DRUGS (19)
  1. ROFLUMILAST [Suspect]
     Active Substance: ROFLUMILAST
     Route: 065
  2. ACTOS [Suspect]
     Active Substance: PIOGLITAZONE HYDROCHLORIDE
     Route: 065
  3. ALOGLIPTIN BENZOATE [Suspect]
     Active Substance: ALOGLIPTIN BENZOATE
     Route: 065
  4. ALVESCO [Suspect]
     Active Substance: CICLESONIDE
     Route: 065
  5. DEXILANT [Suspect]
     Active Substance: DEXLANSOPRAZOLE
  6. EDARBYCLOR [Suspect]
     Active Substance: AZILSARTAN KAMEDOXOMIL\CHLORTHALIDONE
  7. ENTYVIO [Suspect]
     Active Substance: VEDOLIZUMAB
  8. OMNARIS [Suspect]
     Active Substance: CICLESONIDE
  9. ONDANSETRON [Suspect]
     Active Substance: ONDANSETRON
  10. PANTOPRAZOLE SODIUM [Suspect]
     Active Substance: PANTOPRAZOLE SODIUM
  11. PANTOPRAZOLE MAGNESIUM [Suspect]
     Active Substance: PANTOPRAZOLE MAGNESIUM
  12. ULORIC [Suspect]
     Active Substance: FEBUXOSTAT
  13. ALLOPURINOL [Concomitant]
     Active Substance: ALLOPURINOL
  14. CELECOXIB [Concomitant]
     Active Substance: CELECOXIB
  15. LEVOTHYROXINE [Concomitant]
     Active Substance: LEVOTHYROXINE
  16. MICARDIS [Concomitant]
     Active Substance: TELMISARTAN
  17. PROGRAF [Concomitant]
     Active Substance: TACROLIMUS
  18. ROCALTROL [Concomitant]
     Active Substance: CALCITRIOL
  19. Rofact [Concomitant]

REACTIONS (8)
  - Anxiety [Recovered/Resolved]
  - Blood pressure increased [Recovered/Resolved]
  - Body temperature decreased [Recovered/Resolved]
  - Disease recurrence [Recovered/Resolved]
  - Heart rate increased [Recovered/Resolved]
  - Hypertension [Recovered/Resolved]
  - Pneumonia [Recovered/Resolved]
  - Poor venous access [Recovered/Resolved]
